FAERS Safety Report 5020543-X (Version None)
Quarter: 2006Q2

REPORT INFORMATION
  Report Type: 
  Country: None (occurrence: None)
  Receive Date: 20060606
  Receipt Date: 20060523
  Transmission Date: 20061013
  Serious: Yes (Death, Hospitalization)
  Sender: FDA-Public Use
  Company Number: 2004S1003284

PATIENT
  Age: 63 Year
  Sex: Male
  Weight: 108.8633 kg

DRUGS (15)
  1. CLONAZEPAM [Suspect]
     Indication: PANIC ATTACK
     Dosage: 1 MG HS PO ; 2 MG HS PO
     Route: 048
     Dates: start: 20040930, end: 20041012
  2. CLONAZEPAM [Suspect]
     Indication: RESTLESS LEGS SYNDROME
     Dosage: 1 MG HS PO ; 2 MG HS PO
     Route: 048
     Dates: start: 20040930, end: 20041012
  3. CLONAZEPAM [Suspect]
     Indication: SLEEP DISORDER THERAPY
     Dosage: 1 MG HS PO ; 2 MG HS PO
     Route: 048
     Dates: start: 20040930, end: 20041012
  4. CLONAZEPAM [Suspect]
     Indication: PANIC ATTACK
     Dosage: 1 MG HS PO ; 2 MG HS PO
     Route: 048
     Dates: start: 20040930, end: 20041012
  5. CLONAZEPAM [Suspect]
     Indication: RESTLESS LEGS SYNDROME
     Dosage: 1 MG HS PO ; 2 MG HS PO
     Route: 048
     Dates: start: 20040930, end: 20041012
  6. CLONAZEPAM [Suspect]
     Indication: SLEEP DISORDER THERAPY
     Dosage: 1 MG HS PO ; 2 MG HS PO
     Route: 048
     Dates: start: 20040930, end: 20041012
  7. LISINOPRIL [Concomitant]
  8. FENTANYL TRANSDERMAL SYSTEM [Concomitant]
  9. FLUOXETINE [Concomitant]
  10. INSULIN INJECTION [Concomitant]
  11. ISOPHANE INJECTION , ISOPHANE [Concomitant]
  12. INSULIN [Concomitant]
  13. DOCUSATE SODIUM/SENNA [Concomitant]
  14. ALPRAZOLAM [Concomitant]
  15. TEMAZEPAM [Concomitant]

REACTIONS (28)
  - ABDOMINAL DISTENSION [None]
  - ABDOMINAL PAIN UPPER [None]
  - AMNESIA [None]
  - AUTOIMMUNE HEPATITIS [None]
  - BOWEL MOVEMENT IRREGULARITY [None]
  - CEREBRAL HAEMORRHAGE [None]
  - CEREBRAL THROMBOSIS [None]
  - CEREBROVASCULAR ACCIDENT [None]
  - CONSTIPATION [None]
  - DERMATITIS CONTACT [None]
  - DIARRHOEA [None]
  - DYSPEPSIA [None]
  - EATING DISORDER [None]
  - FAECAL INCONTINENCE [None]
  - HEADACHE [None]
  - HEPATIC CIRRHOSIS [None]
  - HEPATIC STEATOSIS [None]
  - HEPATOCELLULAR DAMAGE [None]
  - HYPOAESTHESIA [None]
  - MYOCARDIAL INFARCTION [None]
  - NIGHTMARE [None]
  - PAIN [None]
  - RASH [None]
  - REFUSAL OF TREATMENT BY PATIENT [None]
  - URINARY INCONTINENCE [None]
  - URINARY RETENTION [None]
  - URINARY TRACT DISORDER [None]
  - WEIGHT DECREASED [None]
